FAERS Safety Report 15434452 (Version 2)
Quarter: 2018Q4

REPORT INFORMATION
  Report Type: Report from Study
  Country: PH (occurrence: PH)
  Receive Date: 20180927
  Receipt Date: 20181001
  Transmission Date: 20190204
  Serious: Yes (Death, Hospitalization)
  Sender: FDA-Public Use
  Company Number: PHHY2017PH080416

PATIENT
  Age: 62 Year
  Sex: Male

DRUGS (6)
  1. TASIGNA [Suspect]
     Active Substance: NILOTINIB
     Indication: CHRONIC MYELOID LEUKAEMIA
     Dosage: 800 UNK, UNK
     Route: 048
     Dates: start: 2013
  2. TASIGNA [Suspect]
     Active Substance: NILOTINIB
     Dosage: 600 MG, UNK
     Route: 048
     Dates: start: 2014
  3. TASIGNA [Suspect]
     Active Substance: NILOTINIB
     Dosage: 600 MG, UNK
     Route: 048
     Dates: start: 2016
  4. TASIGNA [Suspect]
     Active Substance: NILOTINIB
     Dosage: 600 MG, UNK
     Route: 048
     Dates: start: 2017
  5. TASIGNA [Suspect]
     Active Substance: NILOTINIB
     Dosage: 600 MG, UNK
     Route: 048
     Dates: start: 20130830
  6. TASIGNA [Suspect]
     Active Substance: NILOTINIB
     Dosage: 800 MG, UNK
     Route: 065
     Dates: start: 20180904

REACTIONS (11)
  - Acute kidney injury [Fatal]
  - Chronic kidney disease [Fatal]
  - Acute myocardial infarction [Fatal]
  - Myocardial ischaemia [Fatal]
  - Chronic myeloid leukaemia transformation [Unknown]
  - Haemoglobin decreased [Unknown]
  - White blood cell count increased [Unknown]
  - Drug resistance [Unknown]
  - White blood cell count decreased [Unknown]
  - Respiratory failure [Fatal]
  - Hyperleukocytosis [Unknown]

NARRATIVE: CASE EVENT DATE: 20180916
